FAERS Safety Report 5914806-0 (Version None)
Quarter: 2008Q4

REPORT INFORMATION
  Report Type: 
  Country: None (occurrence: None)
  Receive Date: 20081008
  Receipt Date: 20081001
  Transmission Date: 20090506
  Serious: Yes (Hospitalization)
  Sender: FDA-Public Use
  Company Number: APP200800940

PATIENT
  Age: 31 Year
  Sex: Female

DRUGS (2)
  1. DEXAMETHASONE SODIUM PHOSPHATE [Suspect]
     Indication: MULTIPLE SCLEROSIS
     Dosage: 60 MG, ONCE, INTRAVENOUS; 4 MG, 1 IN 6 HR, INTRAVENOUS
     Route: 042
  2. MORPHINE [Concomitant]
     Indication: CONDITION AGGRAVATED

REACTIONS (7)
  - BLOOD LACTATE DEHYDROGENASE INCREASED [None]
  - BONE INFARCTION [None]
  - FAT EMBOLISM [None]
  - HAEMOGLOBIN DECREASED [None]
  - LEUKOCYTOSIS [None]
  - NODULE [None]
  - PAIN [None]
